FAERS Safety Report 6690793-5 (Version None)
Quarter: 2010Q2

REPORT INFORMATION
  Report Type: 
  Country: None (occurrence: None)
  Receive Date: 20100421
  Receipt Date: 20100407
  Transmission Date: 20101027
  Serious: Yes (Hospitalization)
  Sender: FDA-Public Use
  Company Number: US-CELGENEUS-163-21880-10040542

PATIENT
  Sex: Male
  Weight: 63.5 kg

DRUGS (3)
  1. REVLIMID [Suspect]
     Indication: THYROID CANCER METASTATIC
     Route: 048
     Dates: start: 20100311, end: 20100406
  2. CETUXIMAB [Suspect]
     Indication: THYROID CANCER METASTATIC
     Route: 051
     Dates: end: 20100323
  3. COUMADIN [Concomitant]
     Route: 065

REACTIONS (2)
  - INTERNATIONAL NORMALISED RATIO INCREASED [None]
  - PYREXIA [None]
